FAERS Safety Report 20689099 (Version 1)
Quarter: 2022Q2

REPORT INFORMATION
  Report Type: Spontaneous
  Country: US (occurrence: None)
  Receive Date: 20220407
  Receipt Date: 20220407
  Transmission Date: 20220720
  Serious: No
  Sender: FDA-Public Use
  Company Number: None

PATIENT
  Age: 54 Year
  Sex: Male
  Weight: 87.75 kg

DRUGS (1)
  1. OZEMPIC [Suspect]
     Active Substance: SEMAGLUTIDE
     Indication: Blood glucose increased
     Dosage: OTHER STRENGTH : MG/DL;?OTHER QUANTITY : 1 INJECTION(S);?OTHER FREQUENCY : ONCE WEEKLY;?OTHER ROUTE
     Route: 050
     Dates: start: 20220301, end: 20220404

REACTIONS (5)
  - Abdominal pain upper [None]
  - Nausea [None]
  - Feeling abnormal [None]
  - Gastrooesophageal reflux disease [None]
  - Drug ineffective [None]

NARRATIVE: CASE EVENT DATE: 20220404
